FAERS Safety Report 25392851 (Version 2)
Quarter: 2025Q2

REPORT INFORMATION
  Report Type: Report from Study
  Country: CO (occurrence: CO)
  Receive Date: 20250604
  Receipt Date: 20250618
  Transmission Date: 20250716
  Serious: Yes (Other)
  Sender: ABBVIE
  Company Number: CO-ABBVIE-6294054

PATIENT
  Age: 65 Year
  Sex: Female
  Weight: 62 kg

DRUGS (1)
  1. SKYRIZI [Suspect]
     Active Substance: RISANKIZUMAB-RZAA
     Indication: Psoriasis
     Dosage: FORM STRENGTH-150MG?FOA: SOLUTION FOR INJECTION IN PRE-FILLED SYRINGE
     Route: 058
     Dates: start: 20220531

REACTIONS (11)
  - Glaucoma [Unknown]
  - Dizziness [Recovered/Resolved]
  - Dizziness [Recovered/Resolved]
  - Visual impairment [Unknown]
  - Amnesia [Not Recovered/Not Resolved]
  - Haematemesis [Unknown]
  - Pain [Unknown]
  - Malaise [Unknown]
  - Abdominal distension [Unknown]
  - Peripheral swelling [Unknown]
  - Swelling face [Unknown]

NARRATIVE: CASE EVENT DATE: 20220101
